FAERS Safety Report 9036856 (Version 1)
Quarter: 2013Q1

REPORT INFORMATION
  Report Type: Spontaneous
  Country: US (occurrence: None)
  Receive Date: 20130118
  Receipt Date: 20130118
  Transmission Date: 20140127
  Serious: Yes (Hospitalization)
  Sender: FDA-Public Use
  Company Number: None

PATIENT
  Age: 84 Year
  Sex: Female
  Weight: 60 kg

DRUGS (1)
  1. TICAGRELOR [Suspect]
     Route: 048

REACTIONS (1)
  - Diverticulitis [None]
